FAERS Safety Report 5248405-3 (Version None)
Quarter: 2007Q1

REPORT INFORMATION
  Report Type: 
  Country: None (occurrence: None)
  Receive Date: 20070227
  Receipt Date: 20070222
  Transmission Date: 20070707
  Serious: Yes (Other)
  Sender: FDA-Public Use
  Company Number: US-SHR-US-2007-006593

PATIENT
  Age: 66 Year
  Sex: Male

DRUGS (8)
  1. MAGNEVIST [Suspect]
     Dosage: UNK, 1 DOSE
     Route: 042
     Dates: start: 20010824, end: 20010824
  2. MAGNEVIST [Suspect]
     Dosage: UNK, 1 DOSE
     Route: 042
     Dates: start: 20020614, end: 20020614
  3. MAGNEVIST [Suspect]
     Dosage: UNK, 1 DOSE
     Route: 042
     Dates: start: 20021214, end: 20021214
  4. MAGNEVIST [Suspect]
     Dosage: UNK, 1 DOSE
     Route: 042
     Dates: start: 20050422, end: 20050422
  5. MAGNEVIST [Suspect]
     Dosage: UNK, 1 DOSE
     Route: 042
     Dates: start: 20050424, end: 20050424
  6. MAGNEVIST [Suspect]
     Dosage: 50 ML, 1 DOSE
     Route: 042
     Dates: start: 20050628, end: 20050628
  7. MAGNEVIST [Suspect]
     Dosage: UNK, 1 DOSE
     Route: 042
     Dates: start: 20051102, end: 20051102
  8. MAGNEVIST [Suspect]
     Dosage: 50 ML, 1 DOSE
     Route: 042
     Dates: start: 20051213, end: 20051213

REACTIONS (1)
  - NEPHROGENIC FIBROSING DERMOPATHY [None]
